FAERS Safety Report 11043239 (Version 1)
Quarter: 2015Q2

REPORT INFORMATION
  Report Type: Spontaneous
  Country: US (occurrence: None)
  Receive Date: 20150416
  Receipt Date: 20150416
  Transmission Date: 20150821
  Serious: Yes (Life-Threatening, Hospitalization)
  Sender: FDA-Public Use
  Company Number: None

PATIENT
  Age: 16 Year
  Sex: Male
  Weight: 90.72 kg

DRUGS (3)
  1. LANTUS SOLOSTAR [Suspect]
     Active Substance: INSULIN GLARGINE
     Indication: DIABETES MELLITUS MANAGEMENT
     Dosage: 35-40 UNITS/DAY GIVEN INTO/UNDER THE SKIN
     Dates: start: 20150325, end: 20150415
  2. HUMALOG LANTUS SOLOSTAR [Concomitant]
  3. RELIV POWDER [Concomitant]
     Active Substance: DIETARY SUPPLEMENT

REACTIONS (5)
  - Product quality issue [None]
  - Amnesia [None]
  - Loss of consciousness [None]
  - Blood glucose decreased [None]
  - Seizure [None]

NARRATIVE: CASE EVENT DATE: 20150325
